FAERS Safety Report 11078631 (Version 1)
Quarter: 2015Q2

REPORT INFORMATION
  Report Type: Spontaneous
  Country: US (occurrence: None)
  Receive Date: 20150429
  Receipt Date: 20150429
  Transmission Date: 20150821
  Serious: No
  Sender: FDA-Public Use
  Company Number: None

PATIENT
  Age: 53 Year
  Sex: Male

DRUGS (1)
  1. COPAXONE [Suspect]
     Active Substance: GLATIRAMER ACETATE
     Indication: MULTIPLE SCLEROSIS

REACTIONS (6)
  - Eye pain [None]
  - Erectile dysfunction [None]
  - Dry eye [None]
  - Libido decreased [None]
  - Fatigue [None]
  - Cognitive disorder [None]

NARRATIVE: CASE EVENT DATE: 20150420
